FAERS Safety Report 5903991-2 (Version None)
Quarter: 2008Q3

REPORT INFORMATION
  Report Type: 
  Country: None (occurrence: None)
  Receive Date: 20080930
  Receipt Date: 20080918
  Transmission Date: 20090109
  Serious: Yes (Hospitalization)
  Sender: FDA-Public Use
  Company Number: ES-ELI_LILLY_AND_COMPANY-ES200809000556

PATIENT
  Age: 50 Year
  Sex: Male

DRUGS (3)
  1. CYMBALTA [Suspect]
     Indication: DEPRESSION
     Dosage: 60 MG, 2/D
     Route: 048
     Dates: start: 20080501
  2. IBUPROFEN [Interacting]
     Indication: MIGRAINE
     Dosage: 60 MG, AS NEEDED
     Route: 048
     Dates: start: 20080705, end: 20080706
  3. SIMVASTATIN [Concomitant]
     Indication: HYPERLIPIDAEMIA
     Dosage: 10 MG, DAILY (1/D)
     Route: 048
     Dates: start: 19970101

REACTIONS (2)
  - DRUG INTERACTION [None]
  - GASTRIC ULCER HAEMORRHAGE [None]
